FAERS Safety Report 9634547 (Version 1)
Quarter: 2013Q4

REPORT INFORMATION
  Report Type: Spontaneous
  Country: US (occurrence: US)
  Receive Date: 20131021
  Receipt Date: 20131021
  Transmission Date: 20140711
  Serious: No
  Sender: FDA-Public Use
  Company Number: US-PURDUE-USA-2013-0101172

PATIENT
  Age: 62 Year
  Sex: Female

DRUGS (5)
  1. BUTRANS [Suspect]
     Indication: NEURALGIA
     Dosage: 20 MCG/HR, WEEKLY
     Route: 062
     Dates: start: 201205, end: 20130409
  2. CYMBALTA [Concomitant]
     Indication: NEURALGIA
     Dosage: 60 MG, DAILY
     Route: 048
  3. PRAVASTATIN [Concomitant]
     Indication: BLOOD CHOLESTEROL INCREASED
     Dosage: 20 MG, DAILY
     Route: 048
  4. VESICARE [Concomitant]
     Indication: MICTURITION URGENCY
     Dosage: 10 MG, DAILY
     Route: 048
  5. VICTOZA [Concomitant]
     Indication: INCREASED INSULIN REQUIREMENT
     Dosage: 1.8 MG, PM
     Route: 058

REACTIONS (3)
  - Device leakage [Unknown]
  - Application site rash [Not Recovered/Not Resolved]
  - Product adhesion issue [Unknown]
